FAERS Safety Report 15815204 (Version 1)
Quarter: 2019Q1

REPORT INFORMATION
  Report Type: Report from Study
  Country: IT (occurrence: IT)
  Receive Date: 20190112
  Receipt Date: 20190112
  Transmission Date: 20190417
  Serious: Yes (Hospitalization)
  Sender: FDA-Public Use
  Company Number: IT-ACCORD-101528

PATIENT
  Age: 71 Year
  Sex: Male

DRUGS (4)
  1. LISINOPRIL. [Concomitant]
     Active Substance: LISINOPRIL
     Route: 048
  2. NALTREXONE/NALTREXONE HYDROCHLORIDE [Suspect]
     Active Substance: NALTREXONE
     Indication: CARDIAC FAILURE
     Route: 048
     Dates: start: 20180217, end: 20180220
  3. LASIX [Concomitant]
     Active Substance: FUROSEMIDE
     Route: 048
  4. COUMADIN [Concomitant]
     Active Substance: WARFARIN SODIUM
     Route: 048

REACTIONS (2)
  - Off label use [Unknown]
  - Bradyarrhythmia [Recovered/Resolved]

NARRATIVE: CASE EVENT DATE: 20180220
